FAERS Safety Report 14669114 (Version 2)
Quarter: 2019Q4

REPORT INFORMATION
  Report Type: Spontaneous
  Country: US (occurrence: US)
  Receive Date: 20180322
  Receipt Date: 20191001
  Transmission Date: 20200122
  Serious: Yes (Hospitalization)
  Sender: FDA-Public Use
  Company Number: US-TEVA-2018-US-872970

PATIENT
  Age: 10 Year
  Sex: Female

DRUGS (2)
  1. CISPLATIN. [Concomitant]
     Active Substance: CISPLATIN
     Route: 065
  2. 5-FLUOROURACIL [Suspect]
     Active Substance: FLUOROURACIL
     Indication: NASOPHARYNGEAL CANCER
     Dosage: 1000 MG/M2, DAILY, TOTAL DOSE 4800 MG
     Route: 065

REACTIONS (2)
  - Haemodynamic instability [Recovered/Resolved]
  - Arteriospasm coronary [Recovered/Resolved]
